FAERS Safety Report 5099610-0 (Version None)
Quarter: 2006Q3

REPORT INFORMATION
  Report Type: 
  Country: None (occurrence: None)
  Receive Date: 20060906
  Receipt Date: 20060822
  Transmission Date: 20061208
  Serious: Yes (Other)
  Sender: FDA-Public Use
  Company Number: 2006US-03379

PATIENT
  Age: 17 Year
  Sex: Female

DRUGS (1)
  1. ISOTRETINOIN [Suspect]
     Dosage: SEE IMAGE
     Dates: start: 20051101, end: 20060329

REACTIONS (4)
  - ALOPECIA [None]
  - CRYING [None]
  - DEPRESSION [None]
  - PERSONALITY CHANGE [None]
